FAERS Safety Report 5444294-2 (Version None)
Quarter: 2007Q3

REPORT INFORMATION
  Report Type: 
  Country: None (occurrence: None)
  Receive Date: 20070906
  Receipt Date: 20070831
  Transmission Date: 20080115
  Serious: Yes (Hospitalization)
  Sender: FDA-Public Use
  Company Number: FRWYE246531AUG07

PATIENT
  Sex: Male

DRUGS (4)
  1. EFFEXOR XR [Suspect]
     Indication: DEPRESSION
     Dosage: 37.5 MG (FREQUENCY UNKNOWN)
     Route: 048
     Dates: start: 20070615, end: 20070809
  2. COZAAR [Concomitant]
     Dosage: UNKNOWN
  3. TANAKAN [Concomitant]
     Dosage: UNKNOWN
  4. PRAVASTATIN [Concomitant]
     Dosage: UNKNOWN

REACTIONS (9)
  - ASTHENIA [None]
  - CHILLS [None]
  - DERMATITIS EXFOLIATIVE [None]
  - HYPONATRAEMIA [None]
  - MALAISE [None]
  - PRURITUS [None]
  - PSORIASIS [None]
  - SKIN EXFOLIATION [None]
  - TOXIC SKIN ERUPTION [None]
